FAERS Safety Report 25105996 (Version 2)
Quarter: 2025Q2

REPORT INFORMATION
  Report Type: Spontaneous
  Country: US (occurrence: US)
  Receive Date: 20250321
  Receipt Date: 20250421
  Transmission Date: 20250717
  Serious: No
  Sender: PFIZER
  Company Number: US-PFIZER INC-202500060420

PATIENT
  Age: 59 Year
  Sex: Female

DRUGS (2)
  1. GENOTROPIN [Suspect]
     Active Substance: SOMATROPIN
     Dosage: 0.4 MG, ALTERNATE DAY (ALTERNATING 0.4MG + 0.8MG DAILY)
     Dates: start: 2005
  2. GENOTROPIN [Suspect]
     Active Substance: SOMATROPIN
     Dosage: 0.8 MG, ALTERNATE DAY (ALTERNATING 0.4MG + 0.8MG DAILY)
     Dates: start: 2005

REACTIONS (1)
  - Dizziness postural [Recovered/Resolved]
